FAERS Safety Report 5285007-7 (Version None)
Quarter: 2007Q2

REPORT INFORMATION
  Report Type: 
  Country: None (occurrence: None)
  Receive Date: 20070403
  Receipt Date: 20070326
  Transmission Date: 20071010
  Serious: Yes (Other)
  Sender: FDA-Public Use
  Company Number: AU-PFIZER INC-2007013446

PATIENT
  Sex: Male

DRUGS (5)
  1. SILDENAFIL (PAH) [Suspect]
     Route: 048
  2. FRUSEMIDE [Concomitant]
     Route: 048
  3. SPIRONOLACTONE [Concomitant]
     Route: 048
  4. WARFARIN SODIUM [Concomitant]
     Route: 048
  5. RAMIPRIL [Concomitant]
     Route: 048

REACTIONS (2)
  - EXERCISE TEST ABNORMAL [None]
  - RIGHT VENTRICULAR FAILURE [None]
